FAERS Safety Report 13724951 (Version 2)
Quarter: 2017Q4

REPORT INFORMATION
  Report Type: Spontaneous
  Country: US (occurrence: US)
  Receive Date: 20170706
  Receipt Date: 20171109
  Transmission Date: 20180320
  Serious: Yes (Other)
  Sender: FDA-Public Use
  Company Number: US-PFIZER INC-2017285634

PATIENT
  Age: 67 Year
  Sex: Female
  Weight: 81.63 kg

DRUGS (2)
  1. SUTENT [Suspect]
     Active Substance: SUNITINIB MALATE
     Indication: GASTROINTESTINAL STROMAL TUMOUR
     Dosage: 37.5 MG, CYCLIC (DAYS1-28 Q 42 DAYS)
     Route: 048
     Dates: start: 20170619
  2. SUTENT [Suspect]
     Active Substance: SUNITINIB MALATE
     Dosage: 25 MG, CYCLIC (DAYS1-28 Q 42 DAYS)
     Route: 048
     Dates: start: 20170619

REACTIONS (8)
  - Blood pressure increased [Unknown]
  - Diarrhoea [Unknown]
  - Asthenia [Unknown]
  - Headache [Unknown]
  - Heart rate increased [Unknown]
  - Blister [Unknown]
  - Pain in extremity [Unknown]
  - Dysphonia [Unknown]
